FAERS Safety Report 25095317 (Version 1)
Quarter: 2025Q1

REPORT INFORMATION
  Report Type: Spontaneous
  Country: US (occurrence: None)
  Receive Date: 20250319
  Receipt Date: 20250319
  Transmission Date: 20250409
  Serious: Yes (Other)
  Sender: FDA-CTU
  Company Number: None

PATIENT
  Sex: Male

DRUGS (10)
  1. LENALIDOMIDE [Suspect]
     Active Substance: LENALIDOMIDE
  2. INFLUENZA VIRUS VACCINE [Concomitant]
     Active Substance: INFLUENZA VIRUS VACCINE
     Indication: Plasma cell myeloma
     Dosage: FREQUENCY : DAILY;?
     Route: 048
     Dates: start: 20250213
  3. ALFUZOSIN TAB 10MG ER [Concomitant]
  4. ASPIRIN 81 TAB 81 MG EC [Concomitant]
  5. CALCIUM TAB 500MG [Concomitant]
  6. DEXAMETHASONE [Concomitant]
     Active Substance: DEXAMETHASONE
  7. DUTASTERIDE [Concomitant]
     Active Substance: DUTASTERIDE
  8. GABAPENTIN [Concomitant]
     Active Substance: GABAPENTIN
  9. TORSEMIDE TAB 20MG [Concomitant]
  10. VALACYCLOVIR TAB 500MG [Concomitant]

REACTIONS (2)
  - Loss of consciousness [None]
  - Balance disorder [None]
